FAERS Safety Report 4301281-5 (Version None)
Quarter: 2004Q1

REPORT INFORMATION
  Report Type: 
  Country: None (occurrence: None)
  Receive Date: 20040220
  Receipt Date: 20040220
  Transmission Date: 20041129
  Serious: No
  Sender: FDA-Public Use
  Company Number: None

PATIENT
  Age: 84 Year
  Sex: Male
  Weight: 31.7518 kg

DRUGS (2)
  1. LOVENOX [Suspect]
     Indication: MYOCARDIAL INFARCTION
     Dosage: 60 MG SC Q12 H
     Route: 058
  2. ASPIRIN [Concomitant]

REACTIONS (1)
  - HAEMATOMA [None]
